FAERS Safety Report 8056938 (Version 5)
Quarter: 2013Q4

REPORT INFORMATION
  Report Type: Spontaneous
  Country: FR (occurrence: None)
  Receive Date: 20110711
  Receipt Date: 20131106
  Transmission Date: 20140711
  Serious: Yes (Death, Life-Threatening, Hospitalization)
  Sender: FDA-Public Use
  Company Number: 2011029020

PATIENT
  Age: 77 Year
  Sex: Female

DRUGS (13)
  1. PRIVIGEN [Suspect]
     Indication: POLYMYOSITIS
     Dosage: MONTHLY TREATMENT WITH PRIVIGEN 20 G/DAY, 70 G, TOTAL
     Route: 042
     Dates: start: 20110609
  2. AMITRIPTYLINE HYDROCHLORIDE [Concomitant]
  3. EDUCTYL [Concomitant]
  4. CETIRIZINE [Concomitant]
  5. ZOPICLONE (ZOPICLONE) [Concomitant]
  6. METHYLPREDNISOLONE (METHYLPREDNISOLONE) [Concomitant]
  7. ATARAX [Concomitant]
  8. HYDROXYZINE (HYDROXYZINE) [Concomitant]
  9. ACETAMINOPHEN [Concomitant]
  10. SOLU MEDROL (METHYLPREDNISOLONE SODIUM SUCCINATE) [Concomitant]
  11. POLARAMIN (DEXCHLORPENIRAMINE MALEATE) [Concomitant]
  12. KARDEGIC [Concomitant]
  13. NACL (SODIUM CHLORIDE) [Concomitant]

REACTIONS (21)
  - Malaise [None]
  - Chest pain [None]
  - Orthopnoea [None]
  - Pain [None]
  - Apnoea [None]
  - Cardio-respiratory arrest [None]
  - Circulatory collapse [None]
  - Coma [None]
  - Mydriasis [None]
  - Cardiac tamponade [None]
  - Asthenia [None]
  - Asthenia [None]
  - Hypotension [None]
  - Bradycardia [None]
  - Hypoventilation [None]
  - Pericarditis [None]
  - Pleural effusion [None]
  - Hypoxic-ischaemic encephalopathy [None]
  - Pericardial effusion [None]
  - Brain injury [None]
  - Cerebrovascular accident [None]
